FAERS Safety Report 23576624 (Version 1)
Quarter: 2024Q1

REPORT INFORMATION
  Report Type: Spontaneous
  Country: CH (occurrence: None)
  Receive Date: 20240228
  Receipt Date: 20240228
  Transmission Date: 20240410
  Serious: Yes (Hospitalization)
  Sender: FDA-Public Use
  Company Number: 2024A047800

PATIENT
  Age: 86 Year
  Sex: Female
  Weight: 81 kg

DRUGS (13)
  1. QUETIAPINE [Suspect]
     Active Substance: QUETIAPINE
     Indication: Mixed anxiety and depressive disorder
     Dates: start: 202303
  2. TRAZODONE HYDROCHLORIDE [Interacting]
     Active Substance: TRAZODONE HYDROCHLORIDE
     Indication: Mixed anxiety and depressive disorder
     Dosage: THE MORNING
     Dates: start: 202303
  3. TRAZODONE HYDROCHLORIDE [Interacting]
     Active Substance: TRAZODONE HYDROCHLORIDE
     Indication: Mixed anxiety and depressive disorder
     Dosage: AT BEDTIME
     Dates: start: 202303
  4. CLOMETHIAZOLE [Interacting]
     Active Substance: CLOMETHIAZOLE
     Indication: Mixed anxiety and depressive disorder
     Dosage: 192 MG 2X/DAY ; AS NECESSARY192.0MG INTERMITTENT
     Dates: start: 202303
  5. PRAMIPEXOLE [Interacting]
     Active Substance: PRAMIPEXOLE\PRAMIPEXOLE DIHYDROCHLORIDE
     Dosage: IN THE EVENING
  6. PREGABALIN [Interacting]
     Active Substance: PREGABALIN
     Indication: Pain
  7. MICARDIS [Interacting]
     Active Substance: TELMISARTAN
     Dosage: THE MORNING
  8. TORSEMIDE [Interacting]
     Active Substance: TORSEMIDE
     Dosage: THE MORNING
  9. VENLAFAXINE HYDROCHLORIDE [Concomitant]
     Active Substance: VENLAFAXINE HYDROCHLORIDE
     Indication: Mixed anxiety and depressive disorder
     Dosage: THE MORNING CAPS RET
  10. NEXIUM [Concomitant]
     Active Substance: ESOMEPRAZOLE MAGNESIUM
     Dosage: AT NOON
  11. MAGNESIUM [Concomitant]
     Active Substance: MAGNESIUM
     Dosage: THE MORNING
  12. DAFALGAN [Concomitant]
     Active Substance: ACETAMINOPHEN
     Dosage: 3X/DAY ; AS NECESSARY 1.0G INTERMITTENT
  13. FIG FRUIT OIL\SORBITOL [Concomitant]
     Active Substance: FIG FRUIT OIL\SORBITOL
     Dosage: AS NECESSARY INTERMITTENT

REACTIONS (4)
  - Fall [Not Recovered/Not Resolved]
  - Condition aggravated [Not Recovered/Not Resolved]
  - Drug interaction [Unknown]
  - Drug interaction [Unknown]

NARRATIVE: CASE EVENT DATE: 20240124
